FAERS Safety Report 4786627-6 (Version None)
Quarter: 2005Q3

REPORT INFORMATION
  Report Type: 
  Country: None (occurrence: None)
  Receive Date: 20050927
  Receipt Date: 20050711
  Transmission Date: 20060218
  Serious: No
  Sender: FDA-Public Use
  Company Number: USA0507102432

PATIENT
  Age: 27 Year
  Sex: Female

DRUGS (1)
  1. STRATTERA [Suspect]
     Indication: ATTENTION DEFICIT/HYPERACTIVITY DISORDER
     Dosage: 50 MG DAY
     Dates: start: 20050701

REACTIONS (3)
  - DECREASED APPETITE [None]
  - INSOMNIA [None]
  - RESTLESSNESS [None]
